FAERS Safety Report 12918808 (Version 15)
Quarter: 2019Q4

REPORT INFORMATION
  Report Type: Report from Study
  Country: NO (occurrence: NO)
  Receive Date: 20161107
  Receipt Date: 20191217
  Transmission Date: 20200122
  Serious: Yes (Death, Life-Threatening, Hospitalization, Disabling, Other)
  Sender: FDA-Public Use
  Company Number: NO-CELGENEUS-NOR-2016095750

PATIENT
  Age: 82 Year
  Sex: Male

DRUGS (8)
  1. CALCIUM [Concomitant]
     Active Substance: CALCIUM
     Indication: PRODUCT USED FOR UNKNOWN INDICATION
     Dosage: NOT PROVIDED
     Route: 065
  2. POMALIDOMIDE [Suspect]
     Active Substance: POMALIDOMIDE
     Indication: PLASMA CELL MYELOMA
     Dosage: 4MG
     Route: 048
     Dates: start: 20160912, end: 20160922
  3. DEXAMETHASONE. [Suspect]
     Active Substance: DEXAMETHASONE
     Dosage: 20MG
     Route: 048
     Dates: start: 20160919
  4. DEXAMETHASONE. [Suspect]
     Active Substance: DEXAMETHASONE
     Dosage: 20MG
     Route: 048
     Dates: start: 20161013
  5. MAGNESIUM [Concomitant]
     Active Substance: MAGNESIUM
     Indication: PRODUCT USED FOR UNKNOWN INDICATION
     Dosage: 360 MILLIGRAM
     Route: 065
  6. DEXAMETHASONE. [Suspect]
     Active Substance: DEXAMETHASONE
     Indication: PLASMA CELL MYELOMA
     Dosage: 20MG
     Route: 048
     Dates: start: 20160912
  7. BLOOD [Concomitant]
     Active Substance: WHOLE BLOOD
     Indication: PRODUCT USED FOR UNKNOWN INDICATION
     Dosage: 1 UNIT
     Route: 065
  8. POMALIDOMIDE [Suspect]
     Active Substance: POMALIDOMIDE
     Route: 048
     Dates: start: 20161013, end: 20161017

REACTIONS (9)
  - Renal failure [Not Recovered/Not Resolved]
  - Hypocalcaemia [Not Recovered/Not Resolved]
  - Diarrhoea [Recovered/Resolved]
  - Pain in extremity [Not Recovered/Not Resolved]
  - Urinary tract infection [Recovered/Resolved]
  - Cardiac failure [Fatal]
  - Cardiac failure [Recovered/Resolved with Sequelae]
  - Hypomagnesaemia [Not Recovered/Not Resolved]
  - Atrial fibrillation [Recovered/Resolved with Sequelae]

NARRATIVE: CASE EVENT DATE: 20160913
